FAERS Safety Report 15859341 (Version 1)
Quarter: 2019Q1

REPORT INFORMATION
  Report Type: Spontaneous
  Country: US (occurrence: US)
  Receive Date: 20190123
  Receipt Date: 20190123
  Transmission Date: 20190417
  Serious: Yes (Disabling)
  Sender: FDA-Public Use
  Company Number: None

PATIENT
  Age: 43 Year
  Sex: Female
  Weight: 99 kg

DRUGS (8)
  1. CYMBALATA [Concomitant]
  2. RANITIDINE. [Concomitant]
     Active Substance: RANITIDINE
  3. HYDROXAZINE [Concomitant]
  4. DULOXETINE. [Suspect]
     Active Substance: DULOXETINE
     Indication: OSTEOARTHRITIS
     Dosage: ?          QUANTITY:1 CAPSULE(S);?
     Route: 048
     Dates: start: 20181116, end: 20190121
  5. CELEBREX [Concomitant]
     Active Substance: CELECOXIB
  6. WOMEN^S MULTI VITAMIN [Concomitant]
  7. DULOXETINE. [Suspect]
     Active Substance: DULOXETINE
     Indication: ANXIETY
     Dosage: ?          QUANTITY:1 CAPSULE(S);?
     Route: 048
     Dates: start: 20181116, end: 20190121
  8. B-STRESS COMPLEX [Concomitant]

REACTIONS (3)
  - Withdrawal syndrome [None]
  - Bacterial infection [None]
  - Gastric ulcer [None]

NARRATIVE: CASE EVENT DATE: 20190114
